APPROVED DRUG PRODUCT: MESALAMINE
Active Ingredient: MESALAMINE
Strength: 4GM/60ML
Dosage Form/Route: ENEMA;RECTAL
Application: A215269 | Product #001 | TE Code: AB
Applicant: NOVITIUM PHARMA LLC
Approved: Apr 16, 2025 | RLD: No | RS: No | Type: RX